FAERS Safety Report 14573018 (Version 1)
Quarter: 2018Q1

REPORT INFORMATION
  Report Type: Spontaneous
  Country: US (occurrence: US)
  Receive Date: 20180223
  Receipt Date: 20180223
  Transmission Date: 20180509
  Serious: Yes (Life-Threatening, Hospitalization, Disabling, Other)
  Sender: FDA-Public Use
  Company Number: None

PATIENT
  Age: 64 Year
  Sex: Female
  Weight: 66.6 kg

DRUGS (8)
  1. AMLODIPINE [Concomitant]
     Active Substance: AMLODIPINE BESYLATE
  2. BABY ASA [Concomitant]
     Active Substance: ASPIRIN
  3. METFORMIN [Suspect]
     Active Substance: METFORMIN HYDROCHLORIDE
     Indication: TYPE 2 DIABETES MELLITUS
     Route: 048
     Dates: start: 20080101, end: 20170414
  4. LEVEMIR [Concomitant]
     Active Substance: INSULIN DETEMIR
  5. LISINOPRIL/HCTZ [Concomitant]
     Active Substance: HYDROCHLOROTHIAZIDE\LISINOPRIL
  6. JARDIANCE [Suspect]
     Active Substance: EMPAGLIFLOZIN
     Indication: TYPE 2 DIABETES MELLITUS
     Dates: start: 20160301, end: 20170414
  7. JANUVIA [Concomitant]
     Active Substance: SITAGLIPTIN PHOSPHATE
  8. ESTRADIAL [Concomitant]

REACTIONS (7)
  - Chronic kidney disease [None]
  - Ketoacidosis [None]
  - Renal injury [None]
  - Confusional state [None]
  - Asthenia [None]
  - Neuropathy peripheral [None]
  - Pancreatitis acute [None]

NARRATIVE: CASE EVENT DATE: 20170407
